FAERS Safety Report 15631507 (Version 2)
Quarter: 2018Q4

REPORT INFORMATION
  Report Type: Report from Study
  Country: FR (occurrence: FR)
  Receive Date: 20181119
  Receipt Date: 20181205
  Transmission Date: 20190205
  Serious: Yes (Other)
  Sender: FDA-Public Use
  Company Number: FR-ROCHE-2217386

PATIENT
  Age: 63 Year
  Sex: Male

DRUGS (8)
  1. RITUXIMAB. [Suspect]
     Active Substance: RITUXIMAB
     Indication: DIFFUSE LARGE B-CELL LYMPHOMA
     Route: 065
  2. CYTARABINE. [Suspect]
     Active Substance: CYTARABINE
     Indication: DIFFUSE LARGE B-CELL LYMPHOMA
     Route: 065
  3. DEXAMETHASONE. [Suspect]
     Active Substance: DEXAMETHASONE
     Indication: DIFFUSE LARGE B-CELL LYMPHOMA
     Route: 065
  4. MELPHALAN. [Concomitant]
     Active Substance: MELPHALAN
     Dosage: DAY 2
     Route: 065
  5. ETOPOPHOS [Concomitant]
     Active Substance: ETOPOSIDE PHOSPHATE
     Dosage: 200MG/M2 TO 400MG/M2 DAY-6 TO DAY-3
     Route: 065
  6. ARACYTINE [Concomitant]
     Active Substance: CYTARABINE
     Dosage: 200MG/M2 TO 400MG/M2 DAY-6 TO DAY-3
     Route: 065
  7. OXALIPLATIN. [Suspect]
     Active Substance: OXALIPLATIN
     Indication: DIFFUSE LARGE B-CELL LYMPHOMA
     Route: 065
  8. CARMUSTINE. [Concomitant]
     Active Substance: CARMUSTINE
     Dosage: DAY 7
     Route: 065

REACTIONS (1)
  - Venoocclusive liver disease [Recovered/Resolved]
